FAERS Safety Report 16400481 (Version 2)
Quarter: 2020Q2

REPORT INFORMATION
  Report Type: Spontaneous
  Country: IT (occurrence: IT)
  Receive Date: 20190606
  Receipt Date: 20200414
  Transmission Date: 20200713
  Serious: Yes (Other)
  Sender: FDA-Public Use
  Company Number: IT-PFIZER INC-2019239846

PATIENT
  Age: 29 Year
  Sex: Male

DRUGS (20)
  1. ALLOPURINOL. [Suspect]
     Active Substance: ALLOPURINOL
     Indication: DIURETIC THERAPY
     Dosage: 150 MG, DAILY (150 MG/DIE)
  2. RAMIPRIL. [Suspect]
     Active Substance: RAMIPRIL
     Indication: CONGESTIVE CARDIOMYOPATHY
     Dosage: 2.5 MG, DAILY (DIE)
  3. METOPROLOL. [Suspect]
     Active Substance: METOPROLOL
     Indication: MYOCARDITIS
     Dosage: 50 MG, 2X/DAY
  4. SACUBITRIL/VALSARTAN [Suspect]
     Active Substance: SACUBITRIL\VALSARTAN
     Indication: ATRIAL FIBRILLATION
     Dosage: UNK, 2X/DAY (49/51MG, BID)
     Dates: start: 201702
  5. DIGOXIN. [Suspect]
     Active Substance: DIGOXIN
     Indication: CONGESTIVE CARDIOMYOPATHY
     Dosage: 0.25 MG, DAILY (0.25 MG/DIE)
  6. ALLOPURINOL. [Suspect]
     Active Substance: ALLOPURINOL
     Dosage: 150 MG, DAILY
  7. SACUBITRIL/VALSARTAN [Suspect]
     Active Substance: SACUBITRIL\VALSARTAN
     Indication: CONGESTIVE CARDIOMYOPATHY
     Dosage: UNK, 2X/DAY (24/26 MG, BID)
  8. SACUBITRIL/VALSARTAN [Suspect]
     Active Substance: SACUBITRIL\VALSARTAN
     Dosage: UNK, 2X/DAY (97/103 MG, BID)
     Dates: start: 201705
  9. FUROSEMIDE. [Suspect]
     Active Substance: FUROSEMIDE
     Dosage: 25 MG, DAILY
  10. POTASSIUM CANRENOATE [Suspect]
     Active Substance: CANRENOATE POTASSIUM
     Indication: CONGESTIVE CARDIOMYOPATHY
     Dosage: 25 MG, DAILY (25 MG/DIE)
  11. WARFARIN SODIUM. [Suspect]
     Active Substance: WARFARIN SODIUM
     Indication: ATRIAL THROMBOSIS
     Dosage: UNK
  12. AMIODARONE HCL [Suspect]
     Active Substance: AMIODARONE HYDROCHLORIDE
     Indication: CONGESTIVE CARDIOMYOPATHY
     Dosage: UNK
     Dates: start: 2016, end: 201608
  13. RAMIPRIL. [Suspect]
     Active Substance: RAMIPRIL
     Indication: MYOCARDITIS
     Dosage: 1.25 MG, DAILY (1.25 MG/DIE)
  14. METOPROLOL. [Suspect]
     Active Substance: METOPROLOL
     Indication: CONGESTIVE CARDIOMYOPATHY
     Dosage: 50 MG, 2X/DAY (50 MG, BID)
  15. FUROSEMIDE. [Suspect]
     Active Substance: FUROSEMIDE
     Dosage: 25 MG, DAILY (25 MG/DIE)
  16. AMIODARONE HCL [Suspect]
     Active Substance: AMIODARONE HYDROCHLORIDE
     Indication: MYOCARDITIS
  17. METOPROLOL. [Suspect]
     Active Substance: METOPROLOL
     Dosage: 50 MG, 2X/DAY
  18. FUROSEMIDE. [Suspect]
     Active Substance: FUROSEMIDE
     Indication: DIURETIC THERAPY
     Dosage: 50 MG, DAILY
  19. DIGOXIN. [Suspect]
     Active Substance: DIGOXIN
     Indication: MYOCARDITIS
  20. POTASSIUM CANRENOATE [Suspect]
     Active Substance: CANRENOATE POTASSIUM
     Indication: MYOCARDITIS
     Dosage: 25 MG, DAILY

REACTIONS (6)
  - Ejection fraction decreased [Recovered/Resolved]
  - Left ventricular dilatation [Recovered/Resolved]
  - Palpitations [Recovered/Resolved]
  - Atrial fibrillation [Recovered/Resolved]
  - Sinus rhythm [Recovered/Resolved]
  - Hypotension [Recovered/Resolved]

NARRATIVE: CASE EVENT DATE: 201610
